FAERS Safety Report 16060542 (Version 1)
Quarter: 2019Q1

REPORT INFORMATION
  Report Type: Report from Study
  Country: IT (occurrence: IT)
  Receive Date: 20190312
  Receipt Date: 20190312
  Transmission Date: 20190418
  Serious: Yes (Other)
  Sender: FDA-Public Use
  Company Number: IT-GLAXOSMITHKLINE-IT2019039761

PATIENT
  Age: 65 Year
  Sex: Male

DRUGS (4)
  1. TRIATEC HCT [Concomitant]
     Active Substance: HYDROCHLOROTHIAZIDE\RAMIPRIL
     Indication: PRODUCT USED FOR UNKNOWN INDICATION
     Dosage: UNK
     Route: 048
  2. DIFMETRE [Concomitant]
     Active Substance: CAFFEINE\INDOMETHACIN\PROCHLORPERAZINE MALEATE
     Indication: HEADACHE
     Dosage: UNK
     Route: 048
  3. DICLOFENAC SODIUM. [Suspect]
     Active Substance: DICLOFENAC SODIUM
     Indication: PRODUCT USED FOR UNKNOWN INDICATION
     Dosage: UNK
     Route: 048
  4. FLIXOTIDE [Concomitant]
     Active Substance: FLUTICASONE PROPIONATE
     Indication: PRODUCT USED FOR UNKNOWN INDICATION
     Dosage: UNK
     Route: 048

REACTIONS (4)
  - Angioedema [Unknown]
  - Oedema [Unknown]
  - Hypersensitivity [Unknown]
  - Eyelid oedema [Unknown]

NARRATIVE: CASE EVENT DATE: 20181028
